FAERS Safety Report 26130931 (Version 1)
Quarter: 2025Q4

REPORT INFORMATION
  Report Type: Spontaneous
  Country: US (occurrence: None)
  Receive Date: 20251208
  Receipt Date: 20251208
  Transmission Date: 20260118
  Serious: Yes (Hospitalization)
  Sender: FDA-CTU
  Company Number: None

PATIENT
  Age: 72 Year
  Sex: Male

DRUGS (8)
  1. DALBAVANCIN [Suspect]
     Active Substance: DALBAVANCIN
     Indication: Infection
     Dates: start: 20251120, end: 20251125
  2. CEFADROXIL [Suspect]
     Active Substance: CEFADROXIL
  3. KEFLEX [Suspect]
     Active Substance: CEPHALEXIN
  4. DOXYCYCLINE [Suspect]
     Active Substance: DOXYCYCLINE
  5. BACTRIM [Suspect]
     Active Substance: SULFAMETHOXAZOLE\TRIMETHOPRIM
  6. DAPTOMYCIN [Suspect]
     Active Substance: DAPTOMYCIN
  7. CEFAZOLIN [Suspect]
     Active Substance: CEFAZOLIN
  8. CEFEPIME [Suspect]
     Active Substance: CEFEPIME HYDROCHLORIDE

REACTIONS (4)
  - Infection [None]
  - Blister infected [None]
  - Skin discolouration [None]
  - Pain in extremity [None]

NARRATIVE: CASE EVENT DATE: 20251123
